FAERS Safety Report 17487556 (Version 1)
Quarter: 2020Q1

REPORT INFORMATION
  Report Type: Spontaneous
  Country: DE (occurrence: DE)
  Receive Date: 20200303
  Receipt Date: 20200303
  Transmission Date: 20200409
  Serious: Yes (Other)
  Sender: FDA-Public Use
  Company Number: DE-PFIZER INC-2020090205

PATIENT
  Age: 27 Year
  Sex: Female
  Weight: 70 kg

DRUGS (1)
  1. CYTOTEC [Suspect]
     Active Substance: MISOPROSTOL
     Indication: LABOUR INDUCTION
     Dosage: 1 DF, SINGLE (ONE TABLET)
     Route: 048
     Dates: start: 20191225, end: 20191225

REACTIONS (8)
  - Product use in unapproved indication [Unknown]
  - Maternal exposure during pregnancy [Unknown]
  - Delusion [Recovered/Resolved]
  - Labour augmentation [Recovered/Resolved]
  - Labour pain [Recovered/Resolved]
  - Precipitate labour [Recovered/Resolved]
  - Cardiovascular disorder [Recovered/Resolved]
  - Off label use [Unknown]

NARRATIVE: CASE EVENT DATE: 20191225
